FAERS Safety Report 26013273 (Version 1)
Quarter: 2025Q4

REPORT INFORMATION
  Report Type: Spontaneous
  Country: US (occurrence: US)
  Receive Date: 20251107
  Receipt Date: 20251107
  Transmission Date: 20260118
  Serious: Yes (Other)
  Sender: APELLIS PHARMACEUTICALS
  Company Number: US-APELLIS-2025-APL-0002094

PATIENT

DRUGS (3)
  1. SYFOVRE [Suspect]
     Active Substance: PEGCETACOPLAN
     Indication: Age-related macular degeneration
     Dosage: ON AVERAGE, SHE RECEIVES THESE INJECTIONS EVERY 8 WEEKS, BUT SOMETIMES GOES AS LITTLE AS EVERY 6 ...
     Route: 031
     Dates: start: 20250104
  2. SYFOVRE [Suspect]
     Active Substance: PEGCETACOPLAN
     Indication: Dry age-related macular degeneration
  3. BETADINE [Concomitant]
     Active Substance: POVIDONE-IODINE
     Indication: Product used for unknown indication

REACTIONS (10)
  - Papilloedema [Unknown]
  - Papilloedema [Unknown]
  - Injection site pain [Recovering/Resolving]
  - Eye inflammation [Recovering/Resolving]
  - Eye inflammation [Recovering/Resolving]
  - Vision blurred [Recovering/Resolving]
  - Vitreous floaters [Recovering/Resolving]
  - Vitreal cells [Unknown]
  - Vitreal cells [Unknown]
  - Visual impairment [Not Recovered/Not Resolved]

NARRATIVE: CASE EVENT DATE: 20251006
